FAERS Safety Report 21863298 (Version 2)
Quarter: 2023Q1

REPORT INFORMATION
  Report Type: Report from Study
  Country: US (occurrence: US)
  Receive Date: 20230115
  Receipt Date: 20230301
  Transmission Date: 20230418
  Serious: Yes (Hospitalization, Other)
  Sender: FDA-Public Use
  Company Number: US-ABBVIE-4269066

PATIENT
  Sex: Female

DRUGS (1)
  1. RINVOQ [Suspect]
     Active Substance: UPADACITINIB
     Indication: Product used for unknown indication
     Dosage: EVENTS ONSET DATE WAS 2022
     Route: 048
     Dates: start: 20220907, end: 202211

REACTIONS (6)
  - Hysterectomy [Recovering/Resolving]
  - Precancerous cells present [Unknown]
  - Influenza [Unknown]
  - Pain in extremity [Unknown]
  - Arthralgia [Unknown]
  - Inflammation [Unknown]
